FAERS Safety Report 8862789 (Version 1)
Quarter: 2012Q4

REPORT INFORMATION
  Report Type: Report from Study
  Country: JP (occurrence: JP)
  Receive Date: 20121026
  Receipt Date: 20121026
  Transmission Date: 20130627
  Serious: Yes (Other)
  Sender: FDA-Public Use
  Company Number: JP-VERTEX PHARMACEUTICAL INC.-2012-023502

PATIENT
  Age: 59 Year
  Sex: Female

DRUGS (6)
  1. VX-950 [Suspect]
     Indication: HEPATITIS C
     Dosage: 1500 mg, qd
     Route: 048
     Dates: start: 20120709, end: 20121001
  2. PEGINTERFERON ALFA-2B [Concomitant]
     Indication: HEPATITIS C
     Dosage: 1.5 ?g/kg, UNK
     Route: 058
     Dates: start: 20120709
  3. RIBAVIRIN [Concomitant]
     Indication: HEPATITIS C
     Dosage: 400 mg, qd
     Route: 048
     Dates: start: 20120709, end: 20120715
  4. RIBAVIRIN [Concomitant]
     Dosage: 200 mg, qd
     Route: 048
     Dates: start: 20120716
  5. RIBAVIRIN [Concomitant]
     Dosage: 400 mg, qd
     Route: 048
     Dates: end: 20120813
  6. RIBAVIRIN [Concomitant]
     Dosage: 200 mg, qd
     Route: 048
     Dates: start: 20120814

REACTIONS (1)
  - Renal impairment [Recovered/Resolved]
